FAERS Safety Report 5144105-9 (Version None)
Quarter: 2006Q4

REPORT INFORMATION
  Report Type: 
  Country: None (occurrence: None)
  Receive Date: 20061106
  Receipt Date: 20061025
  Transmission Date: 20070319
  Serious: Yes (Hospitalization)
  Sender: FDA-Public Use
  Company Number: FR-JNJFOC-20061100984

PATIENT
  Age: 21 Year
  Sex: Female

DRUGS (12)
  1. CONTRAMAL [Suspect]
     Route: 065
  2. CONTRAMAL [Suspect]
     Route: 065
  3. CONTRAMAL [Suspect]
     Indication: DRUG USE FOR UNKNOWN INDICATION
     Route: 065
  4. PROZAC [Suspect]
     Indication: DRUG USE FOR UNKNOWN INDICATION
     Route: 048
     Dates: start: 20060728, end: 20060807
  5. METHYLPREDNISOLONE 4MG TAB [Suspect]
     Indication: DRUG USE FOR UNKNOWN INDICATION
     Route: 042
     Dates: start: 20060727, end: 20060803
  6. LEXOMIL [Concomitant]
     Route: 065
  7. POTASSIUM CHLORIDE [Concomitant]
     Route: 065
  8. SODIUM CHLORIDE [Concomitant]
     Route: 065
  9. OMEPRAZOLE [Concomitant]
     Route: 065
  10. LOVENOX [Concomitant]
     Route: 065
  11. ACETAMINOPHEN [Concomitant]
     Route: 065
  12. TRIFLUCAN [Concomitant]
     Route: 065

REACTIONS (2)
  - ENCEPHALOPATHY [None]
  - HYPERTENSION [None]
